FAERS Safety Report 4865579-4 (Version None)
Quarter: 2005Q4

REPORT INFORMATION
  Report Type: 
  Country: None (occurrence: None)
  Receive Date: 20051220
  Receipt Date: 20051129
  Transmission Date: 20060501
  Serious: Yes (Other)
  Sender: FDA-Public Use
  Company Number: NL200511001198

PATIENT
  Age: 18 Year
  Sex: Female

DRUGS (3)
  1. STRATTERA [Suspect]
     Indication: ATTENTION DEFICIT/HYPERACTIVITY DISORDER
     Dosage: 80 MG DAILY 1/D ORAL
     Route: 048
     Dates: start: 20050804, end: 20051026
  2. PIPAMPERONE (PIPAMPERONE) [Concomitant]
  3. FLUOXETINE HCL [Concomitant]

REACTIONS (5)
  - AGGRESSION [None]
  - ANGER [None]
  - HOSTILITY [None]
  - INCREASED APPETITE [None]
  - PHYSICAL ASSAULT [None]
